FAERS Safety Report 17002683 (Version 7)
Quarter: 2020Q2

REPORT INFORMATION
  Report Type: Report from Study
  Country: DE (occurrence: DE)
  Receive Date: 20191107
  Receipt Date: 20200506
  Transmission Date: 20200713
  Serious: Yes (Hospitalization, Other)
  Sender: FDA-Public Use
  Company Number: DE-ROCHE-2433134

PATIENT
  Age: 80 Year
  Sex: Male
  Weight: 67 kg

DRUGS (3)
  1. L-THYROXINE [LEVOTHYROXINE] [Concomitant]
     Active Substance: LEVOTHYROXINE
     Indication: AUTOIMMUNE THYROIDITIS
     Route: 048
     Dates: end: 20190930
  2. METAMIZOLE [Concomitant]
     Active Substance: METAMIZOLE
     Route: 048
  3. ATEZOLIZUMAB. [Suspect]
     Active Substance: ATEZOLIZUMAB
     Indication: NON-SMALL CELL LUNG CANCER
     Dosage: ONGOING
     Route: 042
     Dates: start: 20190909, end: 20190930

REACTIONS (6)
  - Blood thyroid stimulating hormone increased [Recovered/Resolved]
  - Hallucination, auditory [Recovered/Resolved]
  - Pneumonitis [Recovering/Resolving]
  - Incontinence [Unknown]
  - Pulmonary fibrosis [Unknown]
  - Chills [Recovered/Resolved]

NARRATIVE: CASE EVENT DATE: 20190916
